FAERS Safety Report 10576452 (Version 1)
Quarter: 2014Q4

REPORT INFORMATION
  Report Type: Spontaneous
  Country: FR (occurrence: FR)
  Receive Date: 20141111
  Receipt Date: 20141111
  Transmission Date: 20150529
  Serious: Yes (Hospitalization)
  Sender: FDA-Public Use
  Company Number: PHHY2014FR142528

PATIENT
  Age: 16 Year
  Sex: Male

DRUGS (9)
  1. TYSABRI [Suspect]
     Active Substance: NATALIZUMAB
     Indication: FAMILIAL HAEMOPHAGOCYTIC LYMPHOHISTIOCYTOSIS
     Dosage: 300 MG, QM
     Route: 042
     Dates: start: 20130715, end: 201406
  2. CISPLATIN. [Concomitant]
     Active Substance: CISPLATIN
     Indication: PRODUCT USED FOR UNKNOWN INDICATION
     Dosage: UNK
     Route: 065
  3. CORTICOSTEROIDS [Concomitant]
     Active Substance: CORTICOSTEROID NOS
     Dosage: DOSE DECREASED
     Route: 065
  4. NEORAL [Suspect]
     Active Substance: CYCLOSPORINE
     Dosage: DOSE DECREASED
     Route: 065
  5. VEPSIDE [Concomitant]
     Indication: PRODUCT USED FOR UNKNOWN INDICATION
     Dosage: UNK
     Route: 065
  6. TYSABRI [Suspect]
     Active Substance: NATALIZUMAB
     Indication: OFF LABEL USE
  7. NEORAL [Suspect]
     Active Substance: CYCLOSPORINE
     Indication: OFF LABEL USE
     Dosage: UNK
     Route: 065
  8. CORTICOSTEROIDS [Concomitant]
     Active Substance: CORTICOSTEROID NOS
     Indication: PRODUCT USED FOR UNKNOWN INDICATION
     Dosage: UNK
     Route: 065
  9. CARBOPLATIN. [Concomitant]
     Active Substance: CARBOPLATIN
     Indication: PRODUCT USED FOR UNKNOWN INDICATION
     Dosage: UNK
     Route: 065

REACTIONS (17)
  - Motor dysfunction [Unknown]
  - Neurogenic bladder [Unknown]
  - Epstein-Barr virus associated lymphoproliferative disorder [Unknown]
  - Cerebellar atrophy [Unknown]
  - Psychomotor retardation [Unknown]
  - Paraplegia [Unknown]
  - Histiocytosis haematophagic [Unknown]
  - JC virus test positive [Recovered/Resolved]
  - Familial haemophagocytic lymphohistiocytosis [Unknown]
  - CSF lymphocyte count increased [Unknown]
  - Therapeutic response decreased [Unknown]
  - Myelitis [Unknown]
  - Vomiting [Unknown]
  - Headache [Unknown]
  - Progressive multifocal leukoencephalopathy [Not Recovered/Not Resolved]
  - Cognitive disorder [Unknown]
  - CSF protein increased [Unknown]

NARRATIVE: CASE EVENT DATE: 201409
